FAERS Safety Report 15459569 (Version 7)
Quarter: 2019Q4

REPORT INFORMATION
  Report Type: Report from Study
  Country: JP (occurrence: JP)
  Receive Date: 20181003
  Receipt Date: 20191204
  Transmission Date: 20200122
  Serious: Yes (Life-Threatening, Hospitalization, Other)
  Sender: FDA-Public Use
  Company Number: JP-CLINIGEN GROUP PLC/ CLINIGEN HEALTHCARE LTD-JP-CLGN-18-00380

PATIENT
  Age: 1 Year
  Sex: Male
  Weight: 6.1 kg

DRUGS (67)
  1. SAVENE [Suspect]
     Active Substance: DEXRAZOXANE
     Route: 041
     Dates: start: 20190115, end: 20190116
  2. ONCOVIN [Suspect]
     Active Substance: VINCRISTINE SULFATE
     Indication: PRODUCT USED FOR UNKNOWN INDICATION
     Route: 042
     Dates: start: 20180824, end: 20180824
  3. AMIKACIN SULFATE. [Suspect]
     Active Substance: AMIKACIN SULFATE
     Indication: ABSCESS NECK
     Dates: start: 20181122, end: 20181205
  4. ISOTONIC SODIUM CHLORIDE SOLUTION [Concomitant]
     Active Substance: SODIUM CHLORIDE
     Route: 041
     Dates: start: 20181115, end: 20181116
  5. METHOTREXATE. [Concomitant]
     Active Substance: METHOTREXATE
     Route: 028
     Dates: start: 20190115, end: 20190115
  6. MEYLON [Concomitant]
     Active Substance: SODIUM BICARBONATE
     Route: 041
     Dates: start: 20181119, end: 20181121
  7. DIAMOX SEQUELS [Concomitant]
     Active Substance: ACETAZOLAMIDE
     Indication: DIURETIC THERAPY
     Dates: start: 20180823, end: 20180828
  8. ONCOVIN [Suspect]
     Active Substance: VINCRISTINE SULFATE
     Route: 042
     Dates: start: 20181120, end: 20181120
  9. AMIKACIN SULFATE. [Suspect]
     Active Substance: AMIKACIN SULFATE
     Dates: start: 20190118, end: 20190204
  10. CYLOCIDE [Concomitant]
     Active Substance: CYTARABINE
     Route: 028
     Dates: start: 20190115, end: 20190115
  11. SOLU-CORTEF [Concomitant]
     Active Substance: HYDROCORTISONE SODIUM SUCCINATE
     Dates: start: 20180824, end: 20180825
  12. LEUCOVORIN. [Concomitant]
     Active Substance: LEUCOVORIN
     Indication: PRODUCT USED FOR UNKNOWN INDICATION
     Dates: start: 20180825, end: 20180825
  13. SOLDEM [Concomitant]
     Active Substance: DEXTROSE\POTASSIUM CHLORIDE\SODIUM CHLORIDE\SODIUM LACTATE
     Route: 041
     Dates: start: 20181119, end: 20181121
  14. SOSEGON [Concomitant]
     Active Substance: PENTAZOCINE
     Indication: ANALGESIC THERAPY
     Dates: start: 20180824, end: 20180824
  15. FUNGUARD [Concomitant]
     Active Substance: MICAFUNGIN SODIUM
     Route: 041
     Dates: start: 20181128, end: 20181205
  16. OMEPRAZOLE. [Concomitant]
     Active Substance: OMEPRAZOLE
     Indication: GASTRITIS
     Route: 042
     Dates: start: 20180912
  17. INTRALIPOS10% [Concomitant]
     Indication: PRODUCT USED FOR UNKNOWN INDICATION
     Route: 041
     Dates: start: 20180914
  18. HICALIQ-1 [Concomitant]
     Indication: PRODUCT USED FOR UNKNOWN INDICATION
     Route: 041
     Dates: start: 20180928
  19. NEXIUM [Concomitant]
     Active Substance: ESOMEPRAZOLE MAGNESIUM
     Indication: GASTRITIS
     Route: 048
  20. ASTRIC [Concomitant]
     Active Substance: ACYCLOVIR
     Indication: PRODUCT USED FOR UNKNOWN INDICATION
     Route: 048
  21. ONCOVIN [Suspect]
     Active Substance: VINCRISTINE SULFATE
     Route: 042
     Dates: start: 20190115, end: 20190115
  22. METHOTREXATE. [Concomitant]
     Active Substance: METHOTREXATE
     Route: 028
     Dates: start: 20181120, end: 20181120
  23. SOLU-CORTEF [Concomitant]
     Active Substance: HYDROCORTISONE SODIUM SUCCINATE
     Route: 028
     Dates: start: 20181120, end: 20181120
  24. FUNGUARD [Concomitant]
     Active Substance: MICAFUNGIN SODIUM
     Route: 041
     Dates: start: 20190121, end: 20190201
  25. BAKTAR [Concomitant]
     Active Substance: SULFAMETHOXAZOLE\TRIMETHOPRIM
     Indication: INFECTION PROPHYLAXIS
     Route: 048
  26. ISOTONIC SODIUM CHLORIDE SOLUTION [Concomitant]
     Active Substance: SODIUM CHLORIDE
     Indication: MEDICATION DILUTION
     Route: 041
     Dates: start: 20180824, end: 20180825
  27. MEYLON [Concomitant]
     Active Substance: SODIUM BICARBONATE
     Indication: PRODUCT USED FOR UNKNOWN INDICATION
     Route: 041
     Dates: start: 20180823, end: 20180828
  28. DIAMOX SEQUELS [Concomitant]
     Active Substance: ACETAZOLAMIDE
     Dates: start: 20190114, end: 20190119
  29. GRANISETRON [Concomitant]
     Active Substance: GRANISETRON
     Indication: NAUSEA
     Route: 042
     Dates: start: 20180824, end: 20180828
  30. GRANISETRON [Concomitant]
     Active Substance: GRANISETRON
     Route: 042
     Dates: start: 20190115, end: 20190119
  31. VITAJECT [Concomitant]
     Active Substance: CYANOCOBALAMIN\PYRIDOXAMINE HYDROCHLORIDE\THIAMINE HYDROCHLORIDE
     Indication: PRODUCT USED FOR UNKNOWN INDICATION
     Route: 042
     Dates: start: 20180928
  32. ELEJECT [Concomitant]
     Indication: PRODUCT USED FOR UNKNOWN INDICATION
     Route: 041
     Dates: start: 20180928
  33. SAVENE [Suspect]
     Active Substance: DEXRAZOXANE
     Route: 041
     Dates: start: 20181120, end: 20181121
  34. CEFTAZIDIME HYDRATE [Suspect]
     Active Substance: CEFTAZIDIME
     Indication: ABSCESS NECK
     Route: 042
     Dates: start: 20181126, end: 20181205
  35. CYLOCIDE [Concomitant]
     Active Substance: CYTARABINE
     Indication: PRODUCT USED FOR UNKNOWN INDICATION
     Route: 028
     Dates: start: 20180824, end: 20180824
  36. SOLU-CORTEF [Concomitant]
     Active Substance: HYDROCORTISONE SODIUM SUCCINATE
     Dates: start: 20181120, end: 20181121
  37. MEYLON [Concomitant]
     Active Substance: SODIUM BICARBONATE
     Route: 041
     Dates: start: 20190114, end: 20190119
  38. RAVONAL [Concomitant]
     Active Substance: THIOPENTAL
     Dates: start: 20181120, end: 20181120
  39. RAVONAL [Concomitant]
     Active Substance: THIOPENTAL
     Dates: start: 20190115, end: 20190115
  40. SAVENE [Suspect]
     Active Substance: DEXRAZOXANE
     Indication: CHEMOTHERAPY CARDIOTOXICITY ATTENUATION
     Route: 041
     Dates: start: 20180824, end: 20180825
  41. ENDOXAN [Suspect]
     Active Substance: CYCLOPHOSPHAMIDE
     Dates: start: 20181120, end: 20181122
  42. CEFTAZIDIME HYDRATE [Suspect]
     Active Substance: CEFTAZIDIME
     Route: 042
     Dates: start: 20190118, end: 20190204
  43. METHOTREXATE. [Concomitant]
     Active Substance: METHOTREXATE
     Indication: PRODUCT USED FOR UNKNOWN INDICATION
     Route: 028
     Dates: start: 20180824, end: 20180824
  44. CYLOCIDE [Concomitant]
     Active Substance: CYTARABINE
     Route: 028
     Dates: start: 20181120, end: 20181120
  45. DIAMOX SEQUELS [Concomitant]
     Active Substance: ACETAZOLAMIDE
     Dates: start: 20181119, end: 20181124
  46. RAVONAL [Concomitant]
     Active Substance: THIOPENTAL
     Indication: SEDATION
     Dates: start: 20180824, end: 20180824
  47. URSO [Concomitant]
     Active Substance: URSODIOL
     Indication: VENOOCCLUSIVE LIVER DISEASE
     Route: 048
  48. DOXORUBICIN HYDROCHLORIDE. [Suspect]
     Active Substance: DOXORUBICIN HYDROCHLORIDE
     Indication: ATYPICAL TERATOID/RHABDOID TUMOUR OF CNS
     Route: 042
     Dates: start: 20180824, end: 20180825
  49. ENDOXAN [Suspect]
     Active Substance: CYCLOPHOSPHAMIDE
     Indication: PRODUCT USED FOR UNKNOWN INDICATION
     Dates: start: 20180824, end: 20180826
  50. ENDOXAN [Suspect]
     Active Substance: CYCLOPHOSPHAMIDE
     Dates: start: 20190115, end: 20190117
  51. SOLU-CORTEF [Concomitant]
     Active Substance: HYDROCORTISONE SODIUM SUCCINATE
     Dates: start: 20190115, end: 20190117
  52. LEUCOVORIN. [Concomitant]
     Active Substance: LEUCOVORIN
     Dates: start: 20181121, end: 20181121
  53. LEUCOVORIN. [Concomitant]
     Active Substance: LEUCOVORIN
     Dates: start: 20190116, end: 20190116
  54. SOLDEM [Concomitant]
     Active Substance: DEXTROSE\POTASSIUM CHLORIDE\SODIUM CHLORIDE\SODIUM LACTATE
     Route: 041
     Dates: start: 20190114, end: 20190119
  55. SOSEGON [Concomitant]
     Active Substance: PENTAZOCINE
     Dates: start: 20190115, end: 20190115
  56. FUNGUARD [Concomitant]
     Active Substance: MICAFUNGIN SODIUM
     Indication: INFECTION PROPHYLAXIS
     Route: 041
     Dates: start: 20180831, end: 20180909
  57. INTRALIPOS10% [Concomitant]
     Route: 041
     Dates: start: 20190206
  58. DOXORUBICIN HYDROCHLORIDE. [Suspect]
     Active Substance: DOXORUBICIN HYDROCHLORIDE
     Route: 042
     Dates: start: 20181120, end: 20181121
  59. DOXORUBICIN HYDROCHLORIDE. [Suspect]
     Active Substance: DOXORUBICIN HYDROCHLORIDE
     Route: 042
     Dates: start: 20190115, end: 20190116
  60. ISOTONIC SODIUM CHLORIDE SOLUTION [Concomitant]
     Active Substance: SODIUM CHLORIDE
     Route: 041
     Dates: start: 20181120, end: 20181121
  61. SOLU-CORTEF [Concomitant]
     Active Substance: HYDROCORTISONE SODIUM SUCCINATE
     Indication: PYREXIA
     Route: 028
     Dates: start: 20180824, end: 20180824
  62. SOLU-CORTEF [Concomitant]
     Active Substance: HYDROCORTISONE SODIUM SUCCINATE
     Route: 028
     Dates: start: 20190115, end: 20190115
  63. SOLDEM [Concomitant]
     Active Substance: DEXTROSE\POTASSIUM CHLORIDE\SODIUM CHLORIDE\SODIUM LACTATE
     Indication: PRODUCT USED FOR UNKNOWN INDICATION
     Route: 041
     Dates: start: 20180823, end: 20180828
  64. GRANISETRON [Concomitant]
     Active Substance: GRANISETRON
     Route: 042
     Dates: start: 20181120, end: 20181124
  65. SOSEGON [Concomitant]
     Active Substance: PENTAZOCINE
     Dates: start: 20181120, end: 20181120
  66. PLEAMIN-P [Concomitant]
     Indication: PRODUCT USED FOR UNKNOWN INDICATION
     Route: 041
     Dates: start: 20180928
  67. 10% SODIUM CHLORIDE [Concomitant]
     Active Substance: SODIUM CHLORIDE
     Indication: PRODUCT USED FOR UNKNOWN INDICATION
     Route: 041
     Dates: start: 20180928

REACTIONS (8)
  - Oliguria [Recovered/Resolved]
  - Hypoprothrombinaemia [Recovered/Resolved]
  - Off label use [Unknown]
  - Febrile neutropenia [Recovering/Resolving]
  - Antithrombin III decreased [Recovered/Resolved]
  - Disseminated intravascular coagulation [Recovered/Resolved]
  - Pneumonia [Recovered/Resolved]
  - Bone marrow failure [Recovered/Resolved]

NARRATIVE: CASE EVENT DATE: 20180826
